FAERS Safety Report 21522070 (Version 1)
Quarter: 2022Q4

REPORT INFORMATION
  Report Type: Spontaneous
  Country: US (occurrence: None)
  Receive Date: 20221027
  Receipt Date: 20221027
  Transmission Date: 20230112
  Serious: Yes (Death, Hospitalization)
  Sender: FDA-Public Use
  Company Number: None

PATIENT
  Age: 72 Year
  Sex: Male
  Weight: 94 kg

DRUGS (2)
  1. CAPECITABINE [Suspect]
     Active Substance: CAPECITABINE
     Indication: Colon cancer
     Dosage: FREQUENCY : TWICE A DAY;?
     Route: 048
     Dates: start: 20220713, end: 20220821
  2. OXALIPLATIN [Suspect]
     Active Substance: OXALIPLATIN
     Indication: Colon cancer
     Dosage: FREQUENCY : ONCE;?
     Route: 042
     Dates: start: 20220713, end: 20220808

REACTIONS (10)
  - Hypophagia [None]
  - Diarrhoea [None]
  - Nausea [None]
  - Vomiting [None]
  - SARS-CoV-2 test positive [None]
  - Hypovolaemic shock [None]
  - Acute kidney injury [None]
  - Dihydropyrimidine dehydrogenase deficiency [None]
  - Coma scale abnormal [None]
  - Candida infection [None]

NARRATIVE: CASE EVENT DATE: 20220822
